FAERS Safety Report 24779573 (Version 1)
Quarter: 2024Q4

REPORT INFORMATION
  Report Type: Spontaneous
  Country: JP (occurrence: JP)
  Receive Date: 20241226
  Receipt Date: 20241226
  Transmission Date: 20250114
  Serious: Yes (Hospitalization, Other)
  Sender: APELLIS PHARMACEUTICALS
  Company Number: JP-BIOVITRUM-2024-JP-016061

PATIENT

DRUGS (1)
  1. EMPAVELI [Suspect]
     Active Substance: PEGCETACOPLAN
     Indication: Paroxysmal nocturnal haemoglobinuria
     Dosage: 1080 MG TWICE/WEEK
     Route: 058
     Dates: start: 20231220

REACTIONS (5)
  - Haemolysis [Recovered/Resolved with Sequelae]
  - Product dose omission in error [Unknown]
  - Blood lactate dehydrogenase increased [Recovered/Resolved]
  - Renal impairment [Not Recovered/Not Resolved]
  - Streptococcal infection [Recovered/Resolved with Sequelae]

NARRATIVE: CASE EVENT DATE: 20241212
